FAERS Safety Report 5862172-1 (Version None)
Quarter: 2008Q3

REPORT INFORMATION
  Report Type: 
  Country: None (occurrence: None)
  Receive Date: 20080828
  Receipt Date: 20071011
  Transmission Date: 20090109
  Serious: No
  Sender: FDA-Public Use
  Company Number: A0687177A

PATIENT
  Age: 58 Year
  Sex: Female

DRUGS (2)
  1. ZOVIRAX [Suspect]
     Dosage: 200MG AS REQUIRED
     Route: 048
     Dates: end: 20070301
  2. WELLBUTRIN XL [Concomitant]

REACTIONS (1)
  - DRUG INEFFECTIVE [None]
